FAERS Safety Report 26042744 (Version 1)
Quarter: 2025Q4

REPORT INFORMATION
  Report Type: Spontaneous
  Country: EU (occurrence: EU)
  Receive Date: 20251113
  Receipt Date: 20251113
  Transmission Date: 20260118
  Serious: Yes (Other)
  Sender: AMGEN
  Company Number: EU-AMGEN-BELSP2025218146

PATIENT
  Age: 62 Year
  Sex: Male

DRUGS (1)
  1. PROLIA [Suspect]
     Active Substance: DENOSUMAB
     Indication: Osteoporosis
     Dosage: UNK
     Route: 065

REACTIONS (7)
  - Osteonecrosis [Unknown]
  - Myalgia [Unknown]
  - Burning sensation [Unknown]
  - Sleep disorder due to general medical condition, insomnia type [Unknown]
  - Peripheral swelling [Unknown]
  - Paraesthesia [Unknown]
  - Bone disorder [Unknown]
